FAERS Safety Report 9964499 (Version 1)
Quarter: 2014Q1

REPORT INFORMATION
  Report Type: Spontaneous
  Country: US (occurrence: US)
  Receive Date: 20140305
  Receipt Date: 20140305
  Transmission Date: 20141002
  Serious: No
  Sender: FDA-Public Use
  Company Number: US-GILEAD-2013-0069113

PATIENT
  Age: 54 Year
  Sex: Male

DRUGS (4)
  1. VIREAD [Suspect]
     Indication: HIV INFECTION
     Dosage: UNK
     Dates: start: 2005
  2. VIREAD [Suspect]
     Indication: HEPATITIS B
  3. EMTRIVA [Suspect]
     Indication: HIV INFECTION
     Dosage: UNK
     Dates: start: 2005
  4. ATRIPLA [Suspect]
     Indication: HIV INFECTION

REACTIONS (3)
  - Hepatic enzyme increased [Unknown]
  - Hepatic enzyme increased [Unknown]
  - Drug ineffective [Unknown]
